FAERS Safety Report 21012127 (Version 1)
Quarter: 2022Q2

REPORT INFORMATION
  Report Type: Spontaneous
  Country: US (occurrence: US)
  Receive Date: 20220627
  Receipt Date: 20220627
  Transmission Date: 20220721
  Serious: No
  Sender: FDA-Public Use
  Company Number: US-GE HEALTHCARE-2022CSU002308

PATIENT

DRUGS (5)
  1. MYOVIEW [Suspect]
     Active Substance: TECHNETIUM TC-99M TETROFOSMIN
     Indication: Cardiac imaging procedure
     Dosage: 373.33 MBQ (10.09 MCI), SINGLE
     Route: 065
     Dates: start: 20220329, end: 20220329
  2. MYOVIEW [Suspect]
     Active Substance: TECHNETIUM TC-99M TETROFOSMIN
     Indication: Product used for unknown indication
  3. TECHNETIUM TC-99M [Concomitant]
     Active Substance: TECHNETIUM TC-99M
     Indication: Cardiac imaging procedure
     Dosage: UNK, SINGLE
     Dates: start: 20220329, end: 20220329
  4. TECHNETIUM TC-99M [Concomitant]
     Active Substance: TECHNETIUM TC-99M
     Indication: Product used for unknown indication
  5. SALINE [Concomitant]
     Active Substance: SODIUM CHLORIDE
     Indication: Medication dilution
     Dosage: UNK, SINGLE
     Dates: start: 20220329, end: 20220329

REACTIONS (2)
  - Radioisotope scan abnormal [Recovered/Resolved]
  - No adverse event [Recovered/Resolved]

NARRATIVE: CASE EVENT DATE: 20220329
